FAERS Safety Report 7778273-7 (Version None)
Quarter: 2011Q3

REPORT INFORMATION
  Report Type: 
  Country: None (occurrence: None)
  Receive Date: 20110926
  Receipt Date: 20110909
  Transmission Date: 20111222
  Serious: Yes (Hospitalization)
  Sender: FDA-Public Use
  Company Number: US-BAYER-2011-028300

PATIENT
  Age: 35 Year
  Sex: Female
  Weight: 73 kg

DRUGS (2)
  1. YASMIN [Suspect]
     Dosage: UNK
     Dates: start: 20030401, end: 20040901
  2. CORRECTOL [Concomitant]
     Indication: CONSTIPATION
     Dosage: UNK UNK, QD
     Dates: start: 20040101

REACTIONS (8)
  - CHOLECYSTITIS CHRONIC [None]
  - GENERAL PHYSICAL HEALTH DETERIORATION [None]
  - CHOLELITHIASIS [None]
  - EMOTIONAL DISTRESS [None]
  - ANXIETY [None]
  - GALLBLADDER DISORDER [None]
  - PAIN [None]
  - INJURY [None]
